FAERS Safety Report 6381969-5 (Version None)
Quarter: 2009Q3

REPORT INFORMATION
  Report Type: 
  Country: None (occurrence: None)
  Receive Date: 20090930
  Receipt Date: 20090922
  Transmission Date: 20100115
  Serious: Yes (Other)
  Sender: FDA-Public Use
  Company Number: VE-ROCHE-658181

PATIENT
  Sex: Male
  Weight: 105 kg

DRUGS (4)
  1. XENICAL [Suspect]
     Indication: OBESITY
     Route: 048
     Dates: start: 20090901, end: 20090921
  2. LOSARTAN POTASSIUM [Concomitant]
  3. AMLODIPINE [Concomitant]
  4. METFORMIN HCL [Concomitant]
     Dosage: DRUG REPORTED AS METFORMIN/GLIBENCLAMIDE

REACTIONS (1)
  - HYPERTENSION [None]
